FAERS Safety Report 10130655 (Version 3)
Quarter: 2014Q2

REPORT INFORMATION
  Report Type: Spontaneous
  Country: AU (occurrence: AU)
  Receive Date: 20140428
  Receipt Date: 20140528
  Transmission Date: 20141212
  Serious: Yes (Other)
  Sender: FDA-Public Use
  Company Number: AU-BAYER-2014-056555

PATIENT
  Sex: Female

DRUGS (1)
  1. CANESTEN CLOTRIMAZOLE THRUSH TREATMENT ONCE PESSARY [Suspect]
     Indication: CANDIDA INFECTION
     Dosage: 1 DOSE, ONCE
     Route: 067
     Dates: start: 20140326, end: 20140326

REACTIONS (2)
  - Post procedural haemorrhage [Not Recovered/Not Resolved]
  - Maternal exposure during pregnancy [None]
